FAERS Safety Report 6103253-7 (Version None)
Quarter: 2009Q1

REPORT INFORMATION
  Report Type: 
  Country: None (occurrence: None)
  Receive Date: 20090305
  Receipt Date: 20090225
  Transmission Date: 20090719
  Serious: Yes (Hospitalization)
  Sender: FDA-Public Use
  Company Number: IT-AMGEN-UK334620

PATIENT
  Sex: Female

DRUGS (5)
  1. KINERET [Suspect]
     Indication: JUVENILE ARTHRITIS
     Route: 058
     Dates: start: 20090121, end: 20090205
  2. FRAXIPARIN [Suspect]
     Route: 058
     Dates: start: 20090115, end: 20090121
  3. ANTRA [Suspect]
     Route: 042
     Dates: start: 20090116, end: 20090129
  4. URBASON [Concomitant]
     Route: 065
  5. IMMUNE GLOBULIN INTRAVENOUS (HUMAN) [Concomitant]
     Route: 042

REACTIONS (1)
  - ERYTHEMA [None]
